FAERS Safety Report 5173400-2 (Version None)
Quarter: 2006Q4

REPORT INFORMATION
  Report Type: 
  Country: None (occurrence: None)
  Receive Date: 20061206
  Receipt Date: 20061125
  Transmission Date: 20070319
  Serious: Yes (Other)
  Sender: FDA-Public Use
  Company Number: 2006130365

PATIENT
  Age: 37 Year
  Sex: Female
  Weight: 43.0917 kg

DRUGS (4)
  1. LYRICA [Suspect]
     Indication: PAIN MANAGEMENT
     Dosage: 300 MG (1 IN 1 D), ORAL
     Route: 048
     Dates: start: 20060501, end: 20060601
  2. DRUG (DRUG) [Concomitant]
  3. KERLONE [Concomitant]
  4. PAMELOR [Concomitant]

REACTIONS (5)
  - ALOPECIA [None]
  - ANTINUCLEAR ANTIBODY POSITIVE [None]
  - ARTHRALGIA [None]
  - JOINT SWELLING [None]
  - SERUM SICKNESS [None]
